FAERS Safety Report 24120969 (Version 2)
Quarter: 2024Q3

REPORT INFORMATION
  Report Type: Spontaneous
  Country: US (occurrence: US)
  Receive Date: 20240722
  Receipt Date: 20240729
  Transmission Date: 20241017
  Serious: No
  Sender: PFIZER
  Company Number: US-PFIZER INC-PV202400094260

PATIENT
  Age: 80 Year
  Sex: Male
  Weight: 68.7 kg

DRUGS (9)
  1. ALDACTONE [Suspect]
     Active Substance: SPIRONOLACTONE
     Indication: Cardiac amyloidosis
     Dosage: 25 MG, 1X/DAY (TAKE 1 TABLET (25 MG) 1 (ONE) TIME EACH DAY)
     Route: 048
     Dates: start: 20240124
  2. ALDACTONE [Suspect]
     Active Substance: SPIRONOLACTONE
     Indication: Heart failure with reduced ejection fraction
     Dosage: 25 MG, 1X/DAY (PATIENT TAKING DIFFERENTLY: TAKE 1 TABLET (25 MG) IN THE EVENING)
     Route: 048
     Dates: start: 20240124
  3. ELIQUIS [Suspect]
     Active Substance: APIXABAN
     Indication: Cardiac amyloidosis
     Dosage: 5 MG, 2X/DAY
     Route: 048
  4. ELIQUIS [Suspect]
     Active Substance: APIXABAN
     Indication: Heart failure with reduced ejection fraction
     Dosage: 2.5 MG, 2X/DAY (TAKE 2.5 MG BY MOUTH IN THE MORNING AND AT BEDTIME)
     Route: 048
     Dates: start: 20230725
  5. PLAVIX [Concomitant]
     Active Substance: CLOPIDOGREL BISULFATE
     Dosage: UNK
  6. DIGOXIN [Concomitant]
     Active Substance: DIGOXIN
     Dosage: UNK
  7. TOPROL XL [Concomitant]
     Active Substance: METOPROLOL SUCCINATE
     Dosage: 25 MG, DAILY
  8. SYNTHROID [Concomitant]
     Active Substance: LEVOTHYROXINE SODIUM
     Dosage: 25 UG, 1X/DAY (TAKE 1 TABLET (25 MCG) IN THE MORNING.)
     Route: 048
  9. LEVOXYL [Concomitant]
     Active Substance: LEVOTHYROXINE SODIUM
     Dosage: 25 UG, 1X/DAY (TAKE 1 TABLET (25 MCG) IN THE MORNING.)
     Route: 048

REACTIONS (4)
  - Epistaxis [Not Recovered/Not Resolved]
  - Weight increased [Unknown]
  - Bradycardia [Unknown]
  - Off label use [Unknown]
